FAERS Safety Report 5660495-2 (Version None)
Quarter: 2008Q1

REPORT INFORMATION
  Report Type: 
  Country: None (occurrence: None)
  Receive Date: 20080306
  Receipt Date: 20080227
  Transmission Date: 20080703
  Serious: Yes (Hospitalization)
  Sender: FDA-Public Use
  Company Number: 2007SP025214

PATIENT
  Age: 53 Year
  Sex: Male
  Weight: 85 kg

DRUGS (6)
  1. TEMODAL [Suspect]
     Indication: GLIOBLASTOMA
     Dosage: 150 MG; QD; PO, 75 MG/M2; QD;
     Dates: start: 20071113, end: 20071216
  2. TEMODAL [Suspect]
     Indication: GLIOBLASTOMA
     Dosage: 150 MG; QD; PO, 75 MG/M2; QD;
     Dates: start: 20071224, end: 20071226
  3. DEXAMETHASONE TAB [Suspect]
     Indication: BRAIN OEDEMA
     Dosage: 4 MG; QD; PO
     Route: 048
     Dates: start: 20071004
  4. DEPALEPT [Concomitant]
  5. ZANTAC [Concomitant]
  6. RESPRIM [Concomitant]

REACTIONS (1)
  - PANCREATITIS ACUTE [None]
